FAERS Safety Report 19991626 (Version 1)
Quarter: 2021Q4

REPORT INFORMATION
  Report Type: Spontaneous
  Country: IN (occurrence: IN)
  Receive Date: 20211025
  Receipt Date: 20211025
  Transmission Date: 20220303
  Serious: Yes (Other)
  Sender: FDA-Public Use
  Company Number: IN-AMNEAL PHARMACEUTICALS-2021-AMRX-04380

PATIENT
  Age: 20 Year
  Sex: Male

DRUGS (2)
  1. CYPROHEPTADINE HYDROCHLORIDE [Suspect]
     Active Substance: CYPROHEPTADINE HYDROCHLORIDE
     Indication: Muscle building therapy
     Dosage: (8 MG IN TWO DIVIDED DOSES)
     Route: 065
  2. DEXAMETHASONE SODIUM PHOSPHATE [Suspect]
     Active Substance: DEXAMETHASONE SODIUM PHOSPHATE
     Indication: Muscle building therapy
     Dosage: 0.5 MILLIGRAM, 2X/DAY
     Route: 065

REACTIONS (4)
  - Suicide attempt [Recovered/Resolved]
  - Obsessive-compulsive symptom [Recovered/Resolved]
  - Acne [Recovered/Resolved]
  - Product use in unapproved indication [Unknown]
